FAERS Safety Report 5002558-0 (Version None)
Quarter: 2006Q2

REPORT INFORMATION
  Report Type: 
  Country: None (occurrence: None)
  Receive Date: 20060515
  Receipt Date: 20051107
  Transmission Date: 20061013
  Serious: Yes (Death, Hospitalization)
  Sender: FDA-Public Use
  Company Number: US-MERCK-0511USA01113

PATIENT
  Age: 65 Year
  Sex: Female

DRUGS (12)
  1. VIOXX [Suspect]
     Indication: PAIN
     Route: 048
  2. VIOXX [Suspect]
     Indication: INFLAMMATION
     Route: 048
  3. GLUCOVANCE [Concomitant]
     Route: 065
  4. GLUCOVANCE [Concomitant]
     Route: 065
  5. AVALIDE [Concomitant]
     Route: 065
  6. AVANDIA [Concomitant]
     Route: 065
  7. NEXIUM [Concomitant]
     Route: 065
  8. REGLAN [Concomitant]
     Route: 065
  9. ULTRAM [Concomitant]
     Route: 065
  10. ADVAIR DISKUS 100/50 [Concomitant]
     Route: 065
  11. LASIX [Concomitant]
     Route: 065
  12. SULFASALAZINE [Concomitant]
     Route: 065

REACTIONS (9)
  - ANGINA PECTORIS [None]
  - CARDIAC FAILURE [None]
  - CARDIAC FAILURE CONGESTIVE [None]
  - CORONARY ARTERY DISEASE [None]
  - MYOCARDIAL INFARCTION [None]
  - RENAL FAILURE [None]
  - RESPIRATORY DISTRESS [None]
  - URINARY TRACT INFECTION [None]
  - WRIST SURGERY [None]
